FAERS Safety Report 24714970 (Version 1)
Quarter: 2024Q4

REPORT INFORMATION
  Report Type: Spontaneous
  Country: CN (occurrence: CN)
  Receive Date: 20241210
  Receipt Date: 20241210
  Transmission Date: 20250114
  Serious: Yes (Death, Hospitalization)
  Sender: Jiangsu Hengrui Pharmaceuticals
  Company Number: CN-JIANGSU HENGRUI PHARMACEUTICALS CO., LTD.-H2024001207167

PATIENT
  Age: 81 Year
  Weight: 70 kg

DRUGS (2)
  1. PACLITAXEL [Suspect]
     Active Substance: PACLITAXEL
     Indication: Squamous cell carcinoma of lung
     Dosage: 200 MG, Q3W, D1
  2. SINTILIMAB [Suspect]
     Active Substance: SINTILIMAB
     Indication: Squamous cell carcinoma of lung
     Dosage: 200 MG, Q3W

REACTIONS (2)
  - Acute hepatic failure [Fatal]
  - Product use in unapproved indication [Unknown]
